FAERS Safety Report 10301343 (Version 2)
Quarter: 2014Q3

REPORT INFORMATION
  Report Type: Spontaneous
  Country: US (occurrence: None)
  Receive Date: 20140708
  Receipt Date: 20140714
  Transmission Date: 20150326
  Serious: Yes (Other)
  Sender: FDA-Public Use
  Company Number: 2014VER00065

PATIENT
  Age: 23 Year
  Sex: Female

DRUGS (2)
  1. MYORISAN [Suspect]
     Active Substance: ISOTRETINOIN
     Dates: start: 20140507, end: 20140622
  2. UNSPECIFED ORAL CONTRACEPTIVE PILLS [Concomitant]

REACTIONS (8)
  - Unintended pregnancy [None]
  - Abortion spontaneous [None]
  - Exposure during pregnancy [None]
  - Nasopharyngitis [None]
  - Vaginal haemorrhage [None]
  - Treatment noncompliance [None]
  - Inappropriate schedule of drug administration [None]
  - Drug dose omission [None]

NARRATIVE: CASE EVENT DATE: 20140616
